FAERS Safety Report 9056447 (Version 3)
Quarter: 2013Q2

REPORT INFORMATION
  Report Type: Spontaneous
  Country: US (occurrence: US)
  Receive Date: 20130204
  Receipt Date: 20130408
  Transmission Date: 20140414
  Serious: Yes (Hospitalization, Other)
  Sender: FDA-Public Use
  Company Number: US-CELGENEUS-163-20785-13014436

PATIENT
  Age: 66 Year
  Sex: Male

DRUGS (3)
  1. THALOMID [Suspect]
     Indication: MYELODYSPLASTIC SYNDROME
     Dosage: 100 MILLIGRAM
     Route: 048
     Dates: start: 201005, end: 2010
  2. THALOMID [Suspect]
     Dosage: 50-100MG
     Route: 048
     Dates: start: 201007, end: 2012
  3. THALOMID [Suspect]
     Dosage: 50 MILLIGRAM
     Route: 048
     Dates: start: 201211, end: 20130104

REACTIONS (1)
  - Osteomyelitis [Recovering/Resolving]
